FAERS Safety Report 6497487-X (Version None)
Quarter: 2009Q4

REPORT INFORMATION
  Report Type: 
  Country: None (occurrence: None)
  Receive Date: 20091211
  Receipt Date: 20091201
  Transmission Date: 20100525
  Serious: Yes (Hospitalization)
  Sender: FDA-Public Use
  Company Number: 2009029421

PATIENT
  Age: 61 Year
  Sex: Female
  Weight: 63 kg

DRUGS (6)
  1. TRISENOX [Suspect]
     Dosage: 10 MG, INTRAVENOUS DRIP
     Route: 041
     Dates: start: 20090529, end: 20090724
  2. ATRACURIUM BESYLATE [Suspect]
     Dates: start: 20090529, end: 20090625
  3. COTRIM [Concomitant]
  4. CEFOTRIX (CEFADROXIL) [Concomitant]
  5. ACIC (ACICLOVIR) [Concomitant]
  6. GENTAMICIN [Concomitant]

REACTIONS (2)
  - HYDROCEPHALUS [None]
  - LEUKOCYTOCLASTIC VASCULITIS [None]
